FAERS Safety Report 7242839-3 (Version None)
Quarter: 2011Q1

REPORT INFORMATION
  Report Type: 
  Country: None (occurrence: None)
  Receive Date: 20110125
  Receipt Date: 20110113
  Transmission Date: 20110831
  Serious: Yes (Hospitalization)
  Sender: FDA-Public Use
  Company Number: US-ASTRAZENECA-2011SE02650

PATIENT
  Age: 29 Year
  Sex: Male
  Weight: 88.9 kg

DRUGS (6)
  1. SEROQUEL XR [Suspect]
     Route: 048
  2. COGENTIN [Concomitant]
  3. DEPAKOTE ER [Concomitant]
  4. KLONOPIN [Concomitant]
  5. SEROQUEL XR [Suspect]
     Indication: BIPOLAR DISORDER
     Route: 048
     Dates: start: 20100901
  6. LEXAPRO [Concomitant]

REACTIONS (1)
  - THERAPY REGIMEN CHANGED [None]
